FAERS Safety Report 5321543-2 (Version None)
Quarter: 2007Q2

REPORT INFORMATION
  Report Type: 
  Country: None (occurrence: None)
  Receive Date: 20070220
  Receipt Date: 20070112
  Transmission Date: 20071010
  Serious: No
  Sender: FDA-Public Use
  Company Number: TPA2007A00110

PATIENT
  Age: 66 Year
  Sex: Female
  Weight: 73.4827 kg

DRUGS (8)
  1. ROZEREM [Suspect]
     Indication: INSOMNIA
     Dosage: 8 MG HS PER ORAL
     Route: 048
     Dates: start: 20070111
  2. LISINOPRIL [Concomitant]
  3. FUROSEMIDE [Concomitant]
  4. CALCITRIOL [Concomitant]
  5. LEVOXYL [Concomitant]
  6. PHOSLO [Concomitant]
  7. TRAMADOL HCL [Concomitant]
  8. AMBIEN [Concomitant]

REACTIONS (3)
  - FEELING ABNORMAL [None]
  - INITIAL INSOMNIA [None]
  - NERVOUSNESS [None]
